FAERS Safety Report 6048002-6 (Version None)
Quarter: 2009Q1

REPORT INFORMATION
  Report Type: 
  Country: None (occurrence: None)
  Receive Date: 20090123
  Receipt Date: 20090114
  Transmission Date: 20090719
  Serious: No
  Sender: FDA-Public Use
  Company Number: US-ASTRAZENECA-2009UW01369

PATIENT
  Age: 53 Year
  Sex: Female

DRUGS (2)
  1. NEXIUM [Suspect]
     Dosage: UNKNOWN
     Route: 048
     Dates: start: 20040101, end: 20090107
  2. PRILOSEC [Suspect]
     Dosage: UNKNOWN
     Route: 048

REACTIONS (2)
  - COUGH [None]
  - NASAL CONGESTION [None]
